FAERS Safety Report 22019224 (Version 3)
Quarter: 2025Q4

REPORT INFORMATION
  Report Type: Spontaneous
  Country: GB (occurrence: GB)
  Receive Date: 20230222
  Receipt Date: 20251007
  Transmission Date: 20260118
  Serious: Yes (Death, Life-Threatening, Hospitalization, Disabling, Other)
  Sender: ALKEM
  Company Number: None

PATIENT
  Age: 56 Year
  Sex: Male
  Weight: 92 kg

DRUGS (83)
  1. SOLIFENACIN [Interacting]
     Active Substance: SOLIFENACIN
     Indication: Product used for unknown indication
     Dosage: 82 DOSAGE FORM (FILM-COATED TABLET)
     Route: 048
  2. TAMSULOSIN HYDROCHLORIDE [Interacting]
     Active Substance: TAMSULOSIN HYDROCHLORIDE
     Indication: Product used for unknown indication
     Dosage: 400 MICROGRAM
     Route: 065
     Dates: start: 20190102
  3. TAMSULOSIN HYDROCHLORIDE [Interacting]
     Active Substance: TAMSULOSIN HYDROCHLORIDE
     Dosage: 400 MICROGRAM
     Route: 065
  4. CARBAMAZEPINE [Interacting]
     Active Substance: CARBAMAZEPINE
     Indication: Product used for unknown indication
     Dosage: 750 MILLIGRAM, QD (1 DAY)
     Route: 048
  5. CARBAMAZEPINE [Interacting]
     Active Substance: CARBAMAZEPINE
     Dosage: 750 MILLIGRAM, QD (1 DAY)
     Route: 048
  6. LANSOPRAZOLE [Interacting]
     Active Substance: LANSOPRAZOLE
     Indication: Reflux laryngitis
     Dosage: UNK
     Route: 065
  7. LANSOPRAZOLE [Interacting]
     Active Substance: LANSOPRAZOLE
     Indication: Pruritus
  8. VENLAFAXINE [Interacting]
     Active Substance: VENLAFAXINE HYDROCHLORIDE
     Indication: Depression
     Dosage: 225 MILLIGRAM, QD (VENSIR XL PROLONGED RELEASE)
     Route: 065
  9. VENLAFAXINE [Interacting]
     Active Substance: VENLAFAXINE HYDROCHLORIDE
     Indication: Rheumatoid arthritis
     Dosage: UNK (VENSIR XL PROLONGED RELEASE)
     Route: 065
  10. CLOZAPINE [Interacting]
     Active Substance: CLOZAPINE
     Indication: Schizophrenia
     Dosage: 400 MILLIGRAM (TABLET) (CLOZARIL)
     Route: 048
  11. CLOZAPINE [Interacting]
     Active Substance: CLOZAPINE
     Indication: Schizophrenia
     Dosage: 400 MILLIGRAM (CLOZARIL)
     Route: 048
  12. CLOZAPINE [Interacting]
     Active Substance: CLOZAPINE
     Dosage: UNK (CLOZARIL)
     Route: 048
  13. CLOZAPINE [Interacting]
     Active Substance: CLOZAPINE
     Dosage: 8 MILLIGRAM (CLOZARIL)
     Route: 048
  14. CLOZAPINE [Interacting]
     Active Substance: CLOZAPINE
     Dosage: UNK (TABLET) (CLOZARIL)
     Route: 048
  15. CLOZAPINE [Interacting]
     Active Substance: CLOZAPINE
     Dosage: 8 MILLIGRAM, QD (TABLET) (CLOZARIL)
     Route: 048
  16. CLOZAPINE [Interacting]
     Active Substance: CLOZAPINE
     Dosage: 400 MILLIGRAM, (TABLET) (CLOZARIL)
     Route: 048
  17. CLOZAPINE [Interacting]
     Active Substance: CLOZAPINE
     Dosage: 8 MILLIGRAM, QD (TABLET) (CLOZARIL)
     Route: 048
  18. CLOZAPINE [Interacting]
     Active Substance: CLOZAPINE
     Dosage: 8 MILLIGRAM, QD (TABLET) (CLOZARIL)
     Route: 048
  19. CLOZAPINE [Interacting]
     Active Substance: CLOZAPINE
     Dosage: 400 MILLIGRAM, (TABLET) (CLOZARIL)
     Route: 048
  20. CLOZAPINE [Interacting]
     Active Substance: CLOZAPINE
     Dosage: 40 MILLIGRAM, QD (TABLET) (CLOZARIL)
     Route: 048
  21. CLOZAPINE [Interacting]
     Active Substance: CLOZAPINE
     Dosage: 20 MILLIGRAM, BID (TABLET)
     Route: 048
  22. CLOZAPINE [Interacting]
     Active Substance: CLOZAPINE
     Dosage: 20 MILLIGRAM, BID (TABLET)
     Route: 048
  23. CLOZAPINE [Interacting]
     Active Substance: CLOZAPINE
     Dosage: UNK
     Route: 065
  24. OMEPRAZOLE [Interacting]
     Active Substance: OMEPRAZOLE
     Indication: Abdominal discomfort
     Dosage: 12 MILLIGRAM, BID
     Route: 048
  25. OMEPRAZOLE [Interacting]
     Active Substance: OMEPRAZOLE
     Indication: Gastrooesophageal reflux disease
     Dosage: 20 MILLIGRAM, BID
     Route: 048
  26. OMEPRAZOLE [Interacting]
     Active Substance: OMEPRAZOLE
     Dosage: 20 MILLIGRAM, BID
     Route: 048
  27. OMEPRAZOLE [Interacting]
     Active Substance: OMEPRAZOLE
     Dosage: 20 MILLIGRAM, BID
     Route: 048
  28. OMEPRAZOLE [Interacting]
     Active Substance: OMEPRAZOLE
     Dosage: 20 MILLIGRAM, BID
     Route: 048
  29. OMEPRAZOLE [Interacting]
     Active Substance: OMEPRAZOLE
     Dosage: 400 MICROGRAM
     Route: 065
  30. OMEPRAZOLE [Interacting]
     Active Substance: OMEPRAZOLE
     Dosage: 40 MILLIGRAM, QD
     Route: 065
  31. OMEPRAZOLE [Interacting]
     Active Substance: OMEPRAZOLE
     Dosage: 400 MILLIGRAM
     Route: 048
  32. OMEPRAZOLE [Interacting]
     Active Substance: OMEPRAZOLE
     Dosage: 400 MICROGRAM
     Route: 065
  33. OMEPRAZOLE [Interacting]
     Active Substance: OMEPRAZOLE
     Dosage: 24 MILLIGRAM
     Route: 003
  34. CIPROFLOXACIN [Interacting]
     Active Substance: CIPROFLOXACIN
     Indication: Rheumatoid arthritis
     Dosage: 1000 MILLIGRAM, QD (FILM-COATED TABLET)
     Route: 048
  35. CIPROFLOXACIN [Interacting]
     Active Substance: CIPROFLOXACIN
     Indication: Depression
     Dosage: UNK (FILM-COATED TABLET)
     Route: 065
  36. DOMPERIDONE [Interacting]
     Active Substance: DOMPERIDONE
     Indication: Product used for unknown indication
     Dosage: UNK (FILM-COATED TABLET)
     Route: 048
  37. AMINOPHYLLINE [Interacting]
     Active Substance: AMINOPHYLLINE
     Indication: Product used for unknown indication
     Dosage: 400 MILLIGRAM, QD
     Route: 065
  38. CARBOCYSTEINE [Interacting]
     Active Substance: CARBOCYSTEINE
     Indication: Rheumatoid arthritis
     Dosage: 750 MILLIGRAM, OD (ONCE A DAY)
     Route: 065
  39. CARBOCYSTEINE [Interacting]
     Active Substance: CARBOCYSTEINE
     Dosage: 750 MILLIGRAM, OD (ONCE A DAY)
     Route: 065
  40. CIPROFLOXACIN [Suspect]
     Active Substance: CIPROFLOXACIN
     Indication: Product used for unknown indication
     Dosage: UNK
     Route: 065
  41. MODERNA COVID-19 VACCINE [Interacting]
     Active Substance: ELASOMERAN
     Indication: COVID-19 prophylaxis
     Dosage: 1 DOSAGE FORM
     Route: 030
  42. DEXAMETHASONE [Interacting]
     Active Substance: DEXAMETHASONE
     Indication: Radiotherapy to pharynx
     Dosage: 8 MILLIGRAM, QD
     Route: 048
  43. DEXAMETHASONE [Interacting]
     Active Substance: DEXAMETHASONE
     Indication: Radiotherapy
     Dosage: 10 MILLIGRAM (ORAL SOLUTION)
     Route: 048
  44. DEXAMETHASONE [Interacting]
     Active Substance: DEXAMETHASONE
     Dosage: UNK
     Route: 065
  45. DEXAMETHASONE [Interacting]
     Active Substance: DEXAMETHASONE
     Dosage: 2 MILLIGRAM, QD
     Route: 048
  46. DEXAMETHASONE [Interacting]
     Active Substance: DEXAMETHASONE
     Dosage: 2 MILLIGRAM, QD (ORAL SOLUTION)
     Route: 048
  47. DEXAMETHASONE [Interacting]
     Active Substance: DEXAMETHASONE
     Dosage: 8 MILLIGRAM, QD (ORAL SOLUTION)
     Route: 048
  48. DEXAMETHASONE [Interacting]
     Active Substance: DEXAMETHASONE
     Dosage: 8 MILLIGRAM, QD
     Route: 048
  49. DITIOCARB [Interacting]
     Active Substance: DITIOCARB
     Indication: Abdominal discomfort
     Dosage: 750 MILLIGRAM
     Route: 065
  50. ETANERCEPT [Suspect]
     Active Substance: ETANERCEPT
     Indication: Product used for unknown indication
     Dosage: UNK
     Route: 065
  51. ENBREL [Interacting]
     Active Substance: ETANERCEPT
     Indication: Rheumatoid arthritis
     Dosage: 50 MILLIGRAM, ONCE WEEKLY
     Route: 042
  52. FOLIC ACID [Interacting]
     Active Substance: FOLIC ACID
     Indication: Product used for unknown indication
     Dosage: 5 MILLIGRAM, QD (1 DAY)
     Route: 048
  53. FOLIC ACID [Interacting]
     Active Substance: FOLIC ACID
     Dosage: 5 MILLIGRAM
     Route: 048
  54. FOLIC ACID [Interacting]
     Active Substance: FOLIC ACID
     Dosage: 5 MILLIGRAM
     Route: 048
  55. GUANIDINE [Interacting]
     Active Substance: GUANIDINE
     Indication: Abdominal discomfort
     Dosage: 750 MILLIGRAM, OD
     Route: 048
  56. GUANIDINE [Interacting]
     Active Substance: GUANIDINE
     Indication: Depression
  57. IRBESARTAN [Interacting]
     Active Substance: IRBESARTAN
     Indication: Abdominal discomfort
     Dosage: 150 MILLIGRAM, QD
     Route: 048
  58. IRBESARTAN [Interacting]
     Active Substance: IRBESARTAN
     Dosage: 150 MILLIGRAM, QD
     Route: 048
  59. IRBESARTAN [Interacting]
     Active Substance: IRBESARTAN
     Dosage: 24866 MILLIGRAM
     Route: 065
  60. METHOTREXATE SODIUM [Interacting]
     Active Substance: METHOTREXATE SODIUM
     Indication: Rheumatoid arthritis
     Dosage: 17.5 MILLIGRAM, ONCE WEEKLY
     Route: 065
  61. METHOTREXATE SODIUM [Interacting]
     Active Substance: METHOTREXATE SODIUM
     Dosage: 18 MILLIGRAM, ONCE WEEKLY
     Route: 065
  62. PHYLLOCONTIN [Interacting]
     Active Substance: AMINOPHYLLINE
     Indication: Product used for unknown indication
     Dosage: 400 MILLIGRAM, QD
     Route: 065
  63. SIMVASTATIN [Interacting]
     Active Substance: SIMVASTATIN
     Indication: Product used for unknown indication
     Dosage: 20 MILLIGRAM
     Route: 048
  64. SIMVASTATIN [Interacting]
     Active Substance: SIMVASTATIN
     Dosage: UNK
     Route: 048
  65. SULFAGUANIDINE [Interacting]
     Active Substance: SULFAGUANIDINE
     Indication: Product used for unknown indication
     Dosage: 750 MILLIGRAM
     Route: 048
  66. TRIMETHOPRIM [Interacting]
     Active Substance: TRIMETHOPRIM
     Indication: Urinary tract infection
     Dosage: 200 MILLIGRAM, QD
     Route: 048
  67. ZINC [Interacting]
     Active Substance: ZINC
     Indication: Product used for unknown indication
     Dosage: 750 MILLIGRAM, OD
     Route: 065
  68. DITIOCARB ZINC [Interacting]
     Active Substance: DITIOCARB ZINC
     Indication: Abdominal discomfort
     Dosage: 750 MILLIGRAM, QD
     Route: 065
  69. BECLOMETHASONE [Concomitant]
     Active Substance: BECLOMETHASONE
     Indication: Product used for unknown indication
     Dosage: 146 DOSAGE FORM
     Route: 065
     Dates: start: 20190102
  70. BENDROFLUMETHIAZIDE [Concomitant]
     Active Substance: BENDROFLUMETHIAZIDE
     Indication: Pituitary tumour
     Dosage: UNK
     Route: 065
  71. BENDROFLUMETHIAZIDE [Concomitant]
     Active Substance: BENDROFLUMETHIAZIDE
     Indication: Depression
     Dosage: UNK
     Route: 065
  72. BENDROFLUMETHIAZIDE [Concomitant]
     Active Substance: BENDROFLUMETHIAZIDE
     Dosage: UNK
     Route: 065
  73. CABERGOLINE [Concomitant]
     Active Substance: CABERGOLINE
     Indication: Empty sella syndrome
     Dosage: UNK
     Route: 065
  74. CABERGOLINE [Concomitant]
     Active Substance: CABERGOLINE
     Indication: Pituitary tumour
     Dosage: UNK
     Route: 065
  75. ACTIVATED CHARCOAL [Concomitant]
     Active Substance: ACTIVATED CHARCOAL
     Indication: Product used for unknown indication
     Dosage: 750 MILLIGRAM
     Route: 065
  76. ACTIVATED CHARCOAL [Concomitant]
     Active Substance: ACTIVATED CHARCOAL
     Dosage: 750 MILLIGRAM
     Route: 065
  77. CETIRIZINE [Concomitant]
     Active Substance: CETIRIZINE HYDROCHLORIDE
     Indication: Abdominal discomfort
     Dosage: UNK
     Route: 065
  78. CETIRIZINE [Concomitant]
     Active Substance: CETIRIZINE HYDROCHLORIDE
     Dosage: UNK
     Route: 065
  79. DULOXETINE [Concomitant]
     Active Substance: DULOXETINE
     Indication: Product used for unknown indication
     Dosage: UNK
     Route: 065
  80. EZETIMIBE [Concomitant]
     Active Substance: EZETIMIBE
     Indication: Product used for unknown indication
     Dosage: UNK
     Route: 065
  81. LEVOTHYROXINE [Concomitant]
     Active Substance: LEVOTHYROXINE
     Indication: Abdominal discomfort
     Dosage: UNK
     Route: 065
  82. LEVOTHYROXINE [Concomitant]
     Active Substance: LEVOTHYROXINE
     Dosage: UNK
     Route: 065
  83. ORUVAIL [Concomitant]
     Active Substance: KETOPROFEN
     Indication: Empty sella syndrome
     Dosage: UNK
     Route: 065

REACTIONS (37)
  - Lower respiratory tract infection [Fatal]
  - Inflammation [Fatal]
  - Diarrhoea [Fatal]
  - Gastrointestinal pain [Fatal]
  - Feeling abnormal [Fatal]
  - Dementia [Fatal]
  - Food poisoning [Fatal]
  - Genital ulceration [Fatal]
  - Malaise [Fatal]
  - Irritable bowel syndrome [Fatal]
  - Arthropathy [Fatal]
  - Mucosal inflammation [Fatal]
  - Nightmare [Fatal]
  - Overdose [Fatal]
  - Pulmonary pain [Fatal]
  - Schizophrenia [Fatal]
  - Lung neoplasm malignant [Fatal]
  - COVID-19 [Fatal]
  - Blood potassium decreased [Fatal]
  - Radiation inflammation [Fatal]
  - Illness [Fatal]
  - Oral pain [Fatal]
  - Peripheral swelling [Fatal]
  - Genital pain [Fatal]
  - Drug abuse [Fatal]
  - Drug dependence [Fatal]
  - Abdominal discomfort [Fatal]
  - Intentional product misuse [Fatal]
  - Contusion [Fatal]
  - Drug interaction [Fatal]
  - Abdominal pain upper [Fatal]
  - Rash [Fatal]
  - Product dose omission issue [Fatal]
  - Abdominal pain [Fatal]
  - Off label use [Fatal]
  - Vomiting [Fatal]
  - Condition aggravated [Fatal]

NARRATIVE: CASE EVENT DATE: 20190921
